FAERS Safety Report 9776846 (Version 1)
Quarter: 2013Q4

REPORT INFORMATION
  Report Type: Report from Study
  Country: BR (occurrence: BR)
  Receive Date: 20131221
  Receipt Date: 20131221
  Transmission Date: 20140711
  Serious: Yes (Other)
  Sender: FDA-Public Use
  Company Number: PHHY2013BR149046

PATIENT
  Sex: Female
  Weight: 58 kg

DRUGS (2)
  1. SANDOSTATIN LAR [Suspect]
     Indication: BLOOD GROWTH HORMONE
     Dosage: 30 MG, (ONE AMPOULE) EVERY 28 DAYS
  2. CABERGOLINE [Concomitant]
     Dosage: UNK UKN, UNK

REACTIONS (3)
  - Inguinal hernia [Recovering/Resolving]
  - Procedural pain [Recovering/Resolving]
  - Cough [Recovering/Resolving]
